FAERS Safety Report 19302641 (Version 1)
Quarter: 2021Q2

REPORT INFORMATION
  Report Type: Spontaneous
  Country: US (occurrence: US)
  Receive Date: 20210525
  Receipt Date: 20210525
  Transmission Date: 20210717
  Serious: No
  Sender: FDA-Public Use
  Company Number: US-GLAUKOS-AVE-2020-0195-AE

PATIENT

DRUGS (6)
  1. PHOTREXA VISCOUS [Suspect]
     Active Substance: RIBOFLAVIN 5^-PHOSPHATE SODIUM
     Dosage: 30 DROPS; 1 DROP EVERY 2 MINUTES
     Route: 047
     Dates: start: 20200722, end: 20200722
  2. PHOTREXA [Suspect]
     Active Substance: RIBOFLAVIN 5^-PHOSPHATE SODIUM
     Indication: KERATOCONUS
     Dosage: 10 DROPS PER EYE EVERY 5?10 SECONDS
     Route: 047
     Dates: start: 20200722, end: 20200722
  3. PHOTREXA VISCOUS [Suspect]
     Active Substance: RIBOFLAVIN 5^-PHOSPHATE SODIUM
     Indication: KERATOCONUS
     Dosage: 30 DROPS; 1 DROP EVERY 2 MINUTES
     Route: 047
     Dates: start: 20200722, end: 20200722
  4. KXL SYSTEM [Suspect]
     Active Substance: DEVICE
     Indication: KERATOCONUS
     Route: 047
     Dates: start: 20200722, end: 20200722
  5. KXL SYSTEM [Suspect]
     Active Substance: DEVICE
     Route: 047
     Dates: start: 20200722, end: 20200722
  6. PHOTREXA [Suspect]
     Active Substance: RIBOFLAVIN 5^-PHOSPHATE SODIUM
     Dosage: 10 DROPS PER EYE EVERY 5?10 SECONDS
     Route: 047
     Dates: start: 20200722, end: 20200722

REACTIONS (3)
  - Incorrect dose administered [Unknown]
  - Inappropriate schedule of product administration [Unknown]
  - No adverse event [Unknown]

NARRATIVE: CASE EVENT DATE: 20200722
